FAERS Safety Report 9391179 (Version 1)
Quarter: 2013Q3

REPORT INFORMATION
  Report Type: Spontaneous
  Country: FR (occurrence: FR)
  Receive Date: 20130709
  Receipt Date: 20130709
  Transmission Date: 20140515
  Serious: Yes (Hospitalization)
  Sender: FDA-Public Use
  Company Number: FR-SANOFI-AVENTIS-2013SA067721

PATIENT
  Age: 40 Year
  Sex: Male

DRUGS (3)
  1. TAXOTERE [Suspect]
     Indication: LUNG NEOPLASM MALIGNANT
     Route: 042
     Dates: start: 20130515
  2. ALIMTA [Concomitant]
     Indication: LUNG CANCER METASTATIC
  3. CISPLATINE [Concomitant]
     Indication: LUNG CANCER METASTATIC

REACTIONS (4)
  - Arthralgia [Unknown]
  - Synovitis [Unknown]
  - Synovitis [Unknown]
  - Erythema [Unknown]
